FAERS Safety Report 22090556 (Version 2)
Quarter: 2023Q2

REPORT INFORMATION
  Report Type: Spontaneous
  Country: US (occurrence: US)
  Receive Date: 20230313
  Receipt Date: 20230628
  Transmission Date: 20230721
  Serious: No
  Sender: FDA-Public Use
  Company Number: US-BRISTOL-MYERS SQUIBB COMPANY-2023-036029

PATIENT
  Age: 77 Year
  Sex: Male

DRUGS (1)
  1. REVLIMID [Suspect]
     Active Substance: LENALIDOMIDE
     Indication: Product used for unknown indication
     Dosage: FREQ: DAILY FOR 21 DAYS
     Route: 048

REACTIONS (5)
  - Feeling abnormal [Recovering/Resolving]
  - Hypoaesthesia [Recovering/Resolving]
  - Hyperventilation [Recovering/Resolving]
  - Nausea [Recovering/Resolving]
  - Gastric disorder [Unknown]
